FAERS Safety Report 16762462 (Version 1)
Quarter: 2019Q3

REPORT INFORMATION
  Report Type: Spontaneous
  Country: GB (occurrence: TW)
  Receive Date: 20190831
  Receipt Date: 20190831
  Transmission Date: 20191005
  Serious: Yes (Other)
  Sender: FDA-Public Use
  Company Number: GB-MICRO LABS LIMITED-ML2019-02076

PATIENT
  Age: 65 Year
  Sex: Male

DRUGS (4)
  1. MOSAPRIDE [Suspect]
     Active Substance: MOSAPRIDE
  2. TELMISARTAN. [Suspect]
     Active Substance: TELMISARTAN
  3. MELOXICAM. [Suspect]
     Active Substance: MELOXICAM
  4. LERCANIDIPINE [Suspect]
     Active Substance: LERCANIDIPINE

REACTIONS (1)
  - Stevens-Johnson syndrome [Unknown]
